FAERS Safety Report 4278203-9 (Version None)
Quarter: 2004Q1

REPORT INFORMATION
  Report Type: 
  Country: None (occurrence: None)
  Receive Date: 20040121
  Receipt Date: 20040108
  Transmission Date: 20041129
  Serious: Yes (Hospitalization)
  Sender: FDA-Public Use
  Company Number: 200319280US

PATIENT
  Sex: Female

DRUGS (3)
  1. LASIX [Suspect]
     Dosage: 40 MG
     Dates: start: 20031005
  2. LASIX [Suspect]
     Dosage: 40 MG
  3. FUROSEMIDE [Concomitant]

REACTIONS (5)
  - DRUG INEFFECTIVE [None]
  - LYMPHADENOPATHY [None]
  - OEDEMA [None]
  - PHARMACEUTICAL PRODUCT COMPLAINT [None]
  - WEIGHT INCREASED [None]
